FAERS Safety Report 7480827-2 (Version None)
Quarter: 2011Q2

REPORT INFORMATION
  Report Type: 
  Country: None (occurrence: None)
  Receive Date: 20110512
  Receipt Date: 20110512
  Transmission Date: 20111010
  Serious: Yes (Other)
  Sender: FDA-Public Use
  Company Number: None

PATIENT
  Age: 78 Year

DRUGS (1)
  1. ALENDRONATE SODIUM [Suspect]
     Indication: OSTEOPOROSIS
     Dosage: 70 MG WEEKLY PO
     Route: 048
     Dates: start: 19950101, end: 20050601

REACTIONS (5)
  - WRIST FRACTURE [None]
  - DRUG INEFFECTIVE [None]
  - UPPER LIMB FRACTURE [None]
  - OSTEONECROSIS OF JAW [None]
  - MASTICATION DISORDER [None]
